FAERS Safety Report 4480863-4 (Version None)
Quarter: 2004Q4

REPORT INFORMATION
  Report Type: 
  Country: None (occurrence: None)
  Receive Date: 20041019
  Receipt Date: 20041007
  Transmission Date: 20050328
  Serious: Yes (Other)
  Sender: FDA-Public Use
  Company Number: 2004074466

PATIENT
  Sex: 0

DRUGS (2)
  1. UNISOM [Suspect]
     Indication: OVERDOSE
     Dosage: 8 TABLETS ONCE, ORAL
     Route: 048
  2. ETHANOL (ETHANOL) [Suspect]

REACTIONS (2)
  - COMA [None]
  - OVERDOSE [None]
